FAERS Safety Report 6025906-1 (Version None)
Quarter: 2008Q4

REPORT INFORMATION
  Report Type: 
  Country: None (occurrence: None)
  Receive Date: 20081224
  Receipt Date: 20081214
  Transmission Date: 20090506
  Serious: Yes (Other)
  Sender: FDA-Public Use
  Company Number: CHPA2008US21930

PATIENT
  Age: 36 Year
  Sex: Female

DRUGS (1)
  1. EXCEDRIN (MIGRAINE) [Suspect]
     Indication: HEADACHE
     Dosage: 1 DF, ONCE/SINGLE, ORAL
     Route: 048
     Dates: start: 20081209, end: 20081209

REACTIONS (8)
  - ABDOMINAL PAIN UPPER [None]
  - BEDRIDDEN [None]
  - DIZZINESS [None]
  - EXPIRED DRUG ADMINISTERED [None]
  - NAUSEA [None]
  - NERVOUSNESS [None]
  - PAIN [None]
  - TREMOR [None]
